FAERS Safety Report 4881546-9 (Version None)
Quarter: 2006Q1

REPORT INFORMATION
  Report Type: 
  Country: None (occurrence: None)
  Receive Date: 20060116
  Receipt Date: 20060112
  Transmission Date: 20060701
  Serious: Yes (Hospitalization)
  Sender: FDA-Public Use
  Company Number: J200600007

PATIENT
  Age: 47 Year
  Sex: Female

DRUGS (3)
  1. SAWACILLIN [Suspect]
     Indication: HELICOBACTER INFECTION
     Dosage: 600MG TWICE PER DAY
     Route: 048
     Dates: start: 20051205, end: 20051212
  2. TAKEPRON [Suspect]
     Indication: HELICOBACTER INFECTION
     Dosage: 30MG SEE DOSAGE TEXT
     Route: 048
  3. CLARITHROMYCIN [Suspect]
     Indication: HELICOBACTER INFECTION
     Dosage: 400MG TWICE PER DAY
     Route: 048
     Dates: start: 20051205, end: 20051212

REACTIONS (6)
  - ABDOMINAL PAIN UPPER [None]
  - ANOREXIA [None]
  - HEPATIC FUNCTION ABNORMAL [None]
  - JAUNDICE [None]
  - PANCREATITIS [None]
  - SKIN DISCOLOURATION [None]
